FAERS Safety Report 10974751 (Version 2)
Quarter: 2015Q4

REPORT INFORMATION
  Report Type: Spontaneous
  Country: HR (occurrence: HR)
  Receive Date: 20150401
  Receipt Date: 20151106
  Transmission Date: 20160304
  Serious: Yes (Other)
  Sender: FDA-Public Use
  Company Number: HR-PFIZER INC-2015112126

PATIENT
  Age: 33 Year
  Sex: Male
  Weight: 86 kg

DRUGS (4)
  1. LAMICTAL [Concomitant]
     Active Substance: LAMOTRIGINE
     Dosage: 50 MG, 3X/DAY
  2. LAMICTAL [Concomitant]
     Active Substance: LAMOTRIGINE
     Dosage: 100 MG, 50 MG, 100 MG DAILY
  3. ZELDOX [Suspect]
     Active Substance: ZIPRASIDONE
     Indication: SCHIZOAFFECTIVE DISORDER
     Dosage: 160 MG,(40 MG + 40 MG + 80 MG)
     Route: 048
     Dates: start: 201303
  4. NORMABEL [Suspect]
     Active Substance: DIAZEPAM
     Dosage: 5-10 MG/DAY AS NEEDED
     Route: 048
     Dates: start: 201409, end: 201505

REACTIONS (4)
  - Herpes zoster [Recovering/Resolving]
  - Bronchitis [Recovering/Resolving]
  - Chest pain [Recovering/Resolving]
  - Immunodeficiency [Recovering/Resolving]

NARRATIVE: CASE EVENT DATE: 20140710
